FAERS Safety Report 21652456 (Version 1)
Quarter: 2022Q4

REPORT INFORMATION
  Report Type: Spontaneous
  Country: AT (occurrence: None)
  Receive Date: 20221128
  Receipt Date: 20221128
  Transmission Date: 20230113
  Serious: Yes (Other)
  Sender: FDA-Public Use
  Company Number: 2022A389679

PATIENT
  Age: 65 Year
  Sex: Male

DRUGS (2)
  1. OLAPARIB [Suspect]
     Active Substance: OLAPARIB
     Route: 048
     Dates: start: 202007
  2. OLAPARIB [Suspect]
     Active Substance: OLAPARIB
     Route: 048

REACTIONS (5)
  - Tumour marker increased [Unknown]
  - Abdominal pain [Unknown]
  - Disease recurrence [Unknown]
  - Pancreatic disorder [Unknown]
  - Anaemia [Unknown]
